FAERS Safety Report 24534920 (Version 2)
Quarter: 2024Q4

REPORT INFORMATION
  Report Type: Spontaneous
  Country: DZ (occurrence: DZ)
  Receive Date: 20241022
  Receipt Date: 20241120
  Transmission Date: 20250114
  Serious: Yes (Death, Other)
  Sender: BIOVITRUM
  Company Number: DZ-BIOVITRUM-2024-DZ-013448

PATIENT
  Age: 4 Month
  Sex: Male
  Weight: 5 kg

DRUGS (1)
  1. ORFADIN [Suspect]
     Active Substance: NITISINONE
     Indication: Product used for unknown indication
     Dosage: 1MG/KG/DAY

REACTIONS (2)
  - Tyrosinaemia [Fatal]
  - Disease progression [Fatal]
